FAERS Safety Report 7270902-X (Version None)
Quarter: 2011Q1

REPORT INFORMATION
  Report Type: 
  Country: None (occurrence: None)
  Receive Date: 20110202
  Receipt Date: 20110120
  Transmission Date: 20110831
  Serious: Yes (Other)
  Sender: FDA-Public Use
  Company Number: NL-MYLANLABS-2011S1001384

PATIENT
  Age: 58 Year
  Sex: Female

DRUGS (1)
  1. SIMVASTATINE A [Suspect]
     Indication: HYPERCHOLESTEROLAEMIA
     Dosage: 1D1T
     Route: 048
     Dates: start: 20101013, end: 20101021

REACTIONS (1)
  - PSORIASIS [None]
